FAERS Safety Report 16201700 (Version 1)
Quarter: 2019Q2

REPORT INFORMATION
  Report Type: Spontaneous
  Country: US (occurrence: US)
  Receive Date: 20190415
  Receipt Date: 20190415
  Transmission Date: 20190711
  Serious: Yes (Life-Threatening)
  Sender: FDA-Public Use
  Company Number: None

PATIENT
  Age: 57 Year
  Sex: Female
  Weight: 67.5 kg

DRUGS (11)
  1. VITAMIN E [Concomitant]
     Active Substance: .ALPHA.-TOCOPHEROL
  2. VITAMINS [Concomitant]
     Active Substance: VITAMINS
  3. CALCIUM [Concomitant]
     Active Substance: CALCIUM
  4. NORTRIPTYLINE HCL 25 MG CAP [Suspect]
     Active Substance: NORTRIPTYLINE HYDROCHLORIDE
     Indication: NECK PAIN
     Dosage: ?          QUANTITY:1 CAPSULE(S);OTHER FREQUENCY:1 HR BEFORE BEDTIM;?
     Route: 048
     Dates: start: 20190311, end: 20190411
  5. VITAMIN K-2 [Concomitant]
  6. MAGNESIUM [Concomitant]
     Active Substance: MAGNESIUM
  7. ARMOUR THYROID [Concomitant]
     Active Substance: THYROID, PORCINE
  8. BIOTIN [Concomitant]
     Active Substance: BIOTIN
  9. NORTRIPTYLINE HCL 25 MG CAP [Suspect]
     Active Substance: NORTRIPTYLINE HYDROCHLORIDE
     Indication: MIGRAINE PROPHYLAXIS
     Dosage: ?          QUANTITY:1 CAPSULE(S);OTHER FREQUENCY:1 HR BEFORE BEDTIM;?
     Route: 048
     Dates: start: 20190311, end: 20190411
  10. UBIQUINOL [Concomitant]
     Active Substance: UBIQUINOL
  11. VITAMIN B COMPLEX [Concomitant]
     Active Substance: CYANOCOBALAMIN\DEXPANTHENOL\NIACINAMIDE\PYRIDOXINE HYDROCHLORIDE\RIBOFLAVIN 5^-PHOSPHATE SODIUM\THIAMINE HYDROCHLORIDE\VITAMIN B COMPLEX

REACTIONS (8)
  - Anxiety [None]
  - Bone pain [None]
  - Crying [None]
  - Suicidal ideation [None]
  - Depression [None]
  - Withdrawal syndrome [None]
  - Chills [None]
  - Mental status changes [None]

NARRATIVE: CASE EVENT DATE: 20190411
